FAERS Safety Report 7611512-1 (Version None)
Quarter: 2011Q3

REPORT INFORMATION
  Report Type: 
  Country: None (occurrence: None)
  Receive Date: 20110715
  Receipt Date: 20110712
  Transmission Date: 20111222
  Serious: Yes (Other)
  Sender: FDA-Public Use
  Company Number: US-PFIZER INC-2011145044

PATIENT
  Sex: Female
  Weight: 80 kg

DRUGS (4)
  1. WELLBUTRIN [Suspect]
     Dosage: UNK
     Route: 048
     Dates: start: 19870101
  2. GEODON [Suspect]
     Indication: BIPOLAR I DISORDER
     Dosage: LOW DOSE
     Route: 048
     Dates: start: 20090101, end: 20090101
  3. WELLBUTRIN [Suspect]
     Dosage: UNK
     Route: 048
     Dates: start: 19920101
  4. ABILIFY [Suspect]
     Dosage: UNK

REACTIONS (6)
  - HEAD INJURY [None]
  - SOMNOLENCE [None]
  - GRAND MAL CONVULSION [None]
  - DRUG HYPERSENSITIVITY [None]
  - CONVULSION [None]
  - ROAD TRAFFIC ACCIDENT [None]
